FAERS Safety Report 25265214 (Version 2)
Quarter: 2025Q3

REPORT INFORMATION
  Report Type: Spontaneous
  Country: CH (occurrence: CH)
  Receive Date: 20250502
  Receipt Date: 20250910
  Transmission Date: 20251020
  Serious: Yes (Other)
  Sender: TAKEDA
  Company Number: None

PATIENT
  Age: 51 Year
  Sex: Female

DRUGS (8)
  1. BRINTELLIX [Suspect]
     Active Substance: VORTIOXETINE HYDROBROMIDE
     Indication: Mixed anxiety and depressive disorder
     Dosage: 5 MILLIGRAM, QD
     Dates: start: 202407, end: 202410
  2. BRINTELLIX [Suspect]
     Active Substance: VORTIOXETINE HYDROBROMIDE
     Dosage: 10 MILLIGRAM, QD
     Dates: start: 202407, end: 202410
  3. BRINTELLIX [Suspect]
     Active Substance: VORTIOXETINE HYDROBROMIDE
     Dosage: 20 MILLIGRAM, QD
     Dates: start: 202407, end: 202410
  4. BRINTELLIX [Suspect]
     Active Substance: VORTIOXETINE HYDROBROMIDE
     Dosage: 15 MILLIGRAM, QD
     Dates: start: 202410
  5. CONCERTA [Concomitant]
     Active Substance: METHYLPHENIDATE HYDROCHLORIDE
     Indication: Attention deficit hyperactivity disorder
     Dosage: 36 MILLIGRAM, QD
     Dates: start: 2021
  6. CONCERTA [Concomitant]
     Active Substance: METHYLPHENIDATE HYDROCHLORIDE
     Dosage: 27 MILLIGRAM, QD
     Dates: start: 2021
  7. LAMICTAL [Concomitant]
     Active Substance: LAMOTRIGINE
     Indication: Attention deficit hyperactivity disorder
     Dosage: 150 MILLIGRAM, Q12H
     Dates: start: 2021
  8. HERBALS [Concomitant]
     Active Substance: HERBALS
     Indication: Product used for unknown indication

REACTIONS (3)
  - Lipoedema [Recovering/Resolving]
  - Haematoma [Recovered/Resolved]
  - Telangiectasia [Recovered/Resolved]

NARRATIVE: CASE EVENT DATE: 20240801
